FAERS Safety Report 7770646-1 (Version None)
Quarter: 2011Q3

REPORT INFORMATION
  Report Type: 
  Country: None (occurrence: None)
  Receive Date: 20110922
  Receipt Date: 20110920
  Transmission Date: 20111222
  Serious: Yes (Death)
  Sender: FDA-Public Use
  Company Number: PHEH2011US04746

PATIENT
  Sex: Male

DRUGS (14)
  1. MULTI-VITAMINS [Concomitant]
     Dosage: UNK UKN, UNK
     Route: 048
  2. TESTOSTERONE [Concomitant]
     Dosage: 1.5 ML, FOR EVERY 28 DAYS
     Route: 030
     Dates: start: 20110523
  3. ERGOCALCIFEROL [Concomitant]
     Dosage: UNK UKN, UNK
     Route: 065
  4. SANDOSTATIN LAR [Suspect]
     Indication: ACROMEGALY
     Dosage: 30 MG, EVERY 28 DAYS
     Route: 030
     Dates: start: 20100410
  5. SANDOSTATIN LAR [Suspect]
     Dosage: 30 MG, FOR EVERY 28 DAYS
     Route: 030
     Dates: start: 20110523
  6. LISINOPRIL [Concomitant]
     Dosage: 40 DAILY
     Dates: start: 20100824
  7. VITAMIN D2 [Concomitant]
     Dosage: UNK UKN, UNK
     Route: 065
  8. OMEGA-3 FATTY ACIDS [Concomitant]
     Dosage: 2000 MG, DAILY
     Dates: start: 20110312
  9. INSULIN ISOPHANE [Concomitant]
     Dosage: UNK UKN, UNK
     Route: 058
     Dates: start: 20110214
  10. AMLODIPINE [Concomitant]
     Dosage: 5 MG, ONE TAB DAILY
     Route: 048
     Dates: start: 20110331
  11. METFORMIN [Concomitant]
     Dosage: 500 MG, BID
     Route: 048
     Dates: start: 20110712
  12. LEVOTHYROXINE SODIUM [Concomitant]
     Dosage: 100 MCG DAILY
     Route: 048
     Dates: start: 20110322
  13. GLIPIZIDE [Concomitant]
     Dosage: 10 MG, BID
     Dates: start: 20110312
  14. HYDROCODIN [Concomitant]
     Indication: PAIN
     Dosage: ONE TAB BY MOUTH EVERY 6 HOURS
     Route: 048

REACTIONS (1)
  - DEATH [None]
